FAERS Safety Report 16856576 (Version 2)
Quarter: 2021Q2

REPORT INFORMATION
  Report Type: Spontaneous
  Country: MX (occurrence: MX)
  Receive Date: 20190926
  Receipt Date: 20210622
  Transmission Date: 20210716
  Serious: Yes (Death, Other)
  Sender: FDA-Public Use
  Company Number: PHHY2019MX223403

PATIENT
  Sex: Female

DRUGS (1)
  1. GLIVEC [Suspect]
     Active Substance: IMATINIB MESYLATE
     Indication: CHRONIC MYELOID LEUKAEMIA
     Dosage: 600 MG (6 X 100 MG TABLETS)
     Route: 065

REACTIONS (4)
  - Intestinal malrotation [Unknown]
  - Pain [Unknown]
  - Death [Fatal]
  - Arthralgia [Unknown]
